FAERS Safety Report 15004208 (Version 4)
Quarter: 2019Q3

REPORT INFORMATION
  Report Type: Spontaneous
  Country: CO (occurrence: CO)
  Receive Date: 20180613
  Receipt Date: 20190809
  Transmission Date: 20191004
  Serious: Yes (Hospitalization, Other)
  Sender: FDA-Public Use
  Company Number: CO-AMGEN-COLSP2018060522

PATIENT
  Age: 40 Year
  Sex: Female

DRUGS (4)
  1. ENBREL [Suspect]
     Active Substance: ETANERCEPT
     Dosage: 50 MG, WEEKLY
     Route: 058
  2. ENBREL [Suspect]
     Active Substance: ETANERCEPT
     Indication: ANKYLOSING SPONDYLITIS
     Dosage: 50 MG, WEEKLY
     Route: 058
     Dates: start: 20180228, end: 2018
  3. CEFALEXIN [Concomitant]
     Active Substance: CEPHALEXIN
     Dosage: UNK
  4. NAPROXEN. [Concomitant]
     Active Substance: NAPROXEN
     Dosage: UNK

REACTIONS (14)
  - Hernia [Unknown]
  - Helicobacter infection [Not Recovered/Not Resolved]
  - Injection site erythema [Recovered/Resolved]
  - Injection site haematoma [Recovered/Resolved]
  - Device issue [Unknown]
  - Arthropathy [Not Recovered/Not Resolved]
  - Chronic gastritis [Not Recovered/Not Resolved]
  - Exposure via skin contact [Recovered/Resolved]
  - Injection site swelling [Recovered/Resolved]
  - Chest pain [Recovered/Resolved]
  - Accidental exposure to product [Unknown]
  - Pain in extremity [Unknown]
  - Arthralgia [Not Recovered/Not Resolved]
  - Influenza [Recovered/Resolved]

NARRATIVE: CASE EVENT DATE: 2018
